FAERS Safety Report 8025052-1 (Version None)
Quarter: 2012Q1

REPORT INFORMATION
  Report Type: 
  Country: None (occurrence: None)
  Receive Date: 20120105
  Receipt Date: 20111228
  Transmission Date: 20120608
  Serious: Yes (Other)
  Sender: FDA-Public Use
  Company Number: JP-MERCK-1112USA03443

PATIENT

DRUGS (2)
  1. PLATIBIT [Concomitant]
     Indication: OSTEOPOROSIS
     Route: 048
     Dates: end: 20111228
  2. FOSAMAX [Suspect]
     Indication: OSTEOPOROSIS
     Route: 048
     Dates: end: 20111228

REACTIONS (1)
  - FEMORAL NECK FRACTURE [None]
